FAERS Safety Report 9462101 (Version 1)
Quarter: 2013Q3

REPORT INFORMATION
  Report Type: Spontaneous
  Country: DE (occurrence: DE)
  Receive Date: 20130816
  Receipt Date: 20130816
  Transmission Date: 20140515
  Serious: Yes (Other)
  Sender: FDA-Public Use
  Company Number: DE-ELI_LILLY_AND_COMPANY-DE201308002853

PATIENT
  Age: 37 Year
  Sex: Female

DRUGS (5)
  1. ZYPREXA [Suspect]
     Indication: PSYCHOTIC DISORDER
     Dosage: 5 MG, QD
     Route: 048
  2. TREVILOR [Suspect]
     Indication: PSYCHOTIC DISORDER
     Dosage: 150 MG, QD
  3. TREVILOR [Suspect]
     Dosage: 75 MG, QD
     Route: 048
  4. SEROQUEL [Concomitant]
     Indication: PSYCHOTIC DISORDER
     Dosage: 300 MG, QD
  5. SEROQUEL [Concomitant]
     Dosage: 150 MG, QD

REACTIONS (3)
  - Gestational diabetes [Recovered/Resolved]
  - Vaginal haemorrhage [Unknown]
  - Maternal exposure during pregnancy [Recovered/Resolved]
